FAERS Safety Report 11339613 (Version 1)
Quarter: 2015Q3

REPORT INFORMATION
  Report Type: Spontaneous
  Country: JP (occurrence: JP)
  Receive Date: 20150805
  Receipt Date: 20150805
  Transmission Date: 20151125
  Serious: Yes (Hospitalization, Other)
  Sender: FDA-Public Use
  Company Number: JP-PFIZER INC-2015241201

PATIENT
  Age: 62 Year
  Sex: Male
  Weight: 57 kg

DRUGS (20)
  1. LEVOLEUCOVORIN CALCIUM [Suspect]
     Active Substance: LEVOLEUCOVORIN CALCIUM
     Dosage: 300 MG, 1X/DAY
     Route: 041
     Dates: start: 20140710, end: 20140710
  2. 5-FU [Suspect]
     Active Substance: FLUOROURACIL
     Dosage: 2710 MG, ALTERNATE DAY
     Route: 041
     Dates: start: 20140626, end: 20140626
  3. CAMPTO [Suspect]
     Active Substance: IRINOTECAN
     Dosage: 220 MG, 1X/DAY
     Route: 041
     Dates: start: 20140626, end: 20140626
  4. LEVOLEUCOVORIN CALCIUM [Suspect]
     Active Substance: LEVOLEUCOVORIN CALCIUM
     Indication: PANCREATIC CARCINOMA
     Dosage: 310 MG, 1X/DAY
     Route: 041
     Dates: start: 20140424, end: 20140424
  5. ELPLAT [Suspect]
     Active Substance: OXALIPLATIN
     Dosage: 120 MG, 1X/DAY
     Route: 041
     Dates: start: 20140612, end: 20140612
  6. LEVOLEUCOVORIN CALCIUM [Suspect]
     Active Substance: LEVOLEUCOVORIN CALCIUM
     Dosage: 300 MG, 1X/DAY
     Route: 041
     Dates: start: 20140612, end: 20140612
  7. LEVOLEUCOVORIN CALCIUM [Suspect]
     Active Substance: LEVOLEUCOVORIN CALCIUM
     Dosage: 310 MG, 1X/DAY
     Route: 041
     Dates: start: 20140508, end: 20140508
  8. ELPLAT [Suspect]
     Active Substance: OXALIPLATIN
     Dosage: 130 MG, 1X/DAY
     Route: 041
     Dates: start: 20140508, end: 20140508
  9. ELPLAT [Suspect]
     Active Substance: OXALIPLATIN
     Dosage: 120 MG, 1X/DAY
     Route: 041
     Dates: start: 20140710, end: 20140710
  10. CAMPTO [Suspect]
     Active Substance: IRINOTECAN
     Dosage: 220 MG, 1X/DAY
     Route: 041
     Dates: start: 20140612, end: 20140612
  11. ELPLAT [Suspect]
     Active Substance: OXALIPLATIN
     Indication: PANCREATIC CARCINOMA
     Dosage: 130 MG, 1X/DAY
     Route: 041
     Dates: start: 20140424, end: 20140424
  12. CAMPTO [Suspect]
     Active Substance: IRINOTECAN
     Dosage: 220 MG, 1X/DAY
     Route: 041
     Dates: start: 20140710, end: 20140710
  13. 5-FU [Suspect]
     Active Substance: FLUOROURACIL
     Dosage: 2710 MG, ALTERNATE DAY
     Route: 041
     Dates: start: 20140710, end: 20140710
  14. LEVOLEUCOVORIN CALCIUM [Suspect]
     Active Substance: LEVOLEUCOVORIN CALCIUM
     Dosage: 300 MG, 1X/DAY
     Route: 041
     Dates: start: 20140626, end: 20140626
  15. ELPLAT [Suspect]
     Active Substance: OXALIPLATIN
     Dosage: 120 MG, 1X/DAY
     Route: 041
     Dates: start: 20140626, end: 20140626
  16. CAMPTO [Suspect]
     Active Substance: IRINOTECAN
     Indication: PANCREATIC CARCINOMA
     Dosage: 230 MG, 1X/DAY
     Route: 041
     Dates: start: 20140424, end: 20140424
  17. CAMPTO [Suspect]
     Active Substance: IRINOTECAN
     Dosage: 230 MG, 1X/DAY
     Route: 041
     Dates: start: 20140508, end: 20140508
  18. 5-FU [Suspect]
     Active Substance: FLUOROURACIL
     Indication: PANCREATIC CARCINOMA
     Dosage: 3820 MG, ALTERNATE DAY
     Route: 041
     Dates: start: 20140424, end: 20140424
  19. 5-FU [Suspect]
     Active Substance: FLUOROURACIL
     Dosage: 3820 MG, ALTERNATE DAY
     Route: 041
     Dates: start: 20140508, end: 20140508
  20. 5-FU [Suspect]
     Active Substance: FLUOROURACIL
     Dosage: 2710 MG, ALTERNATE DAY
     Route: 041
     Dates: start: 20140612, end: 20140612

REACTIONS (9)
  - Peripheral sensory neuropathy [Not Recovered/Not Resolved]
  - Nausea [Recovered/Resolved]
  - Stomatitis [Recovering/Resolving]
  - Pyrexia [Recovered/Resolved]
  - Diarrhoea [Recovered/Resolved]
  - Haemoglobin decreased [Recovering/Resolving]
  - Fatigue [Recovered/Resolved]
  - Decreased appetite [Recovered/Resolved]
  - Hyperglycaemia [Unknown]
